FAERS Safety Report 19084661 (Version 1)
Quarter: 2021Q2

REPORT INFORMATION
  Report Type: Other
  Country: CA (occurrence: CA)
  Receive Date: 20210402
  Receipt Date: 20210402
  Transmission Date: 20210717
  Serious: Yes (Other)
  Sender: FDA-Public Use
  Company Number: CA-CELLTRION INC.-2021CA004160

PATIENT

DRUGS (25)
  1. BENADRYL [Concomitant]
     Active Substance: DIPHENHYDRAMINE HYDROCHLORIDE
     Indication: PREMEDICATION
     Dosage: 500.0 MG, 2 EVERY 1 DAYS
     Route: 048
  2. METHYLPREDNISOLONE SODIUM SUCCINATE. [Concomitant]
     Active Substance: METHYLPREDNISOLONE SODIUM SUCCINATE
     Indication: PREMEDICATION
     Dosage: 100.0 MG
     Route: 042
  3. NAPROXEN. [Concomitant]
     Active Substance: NAPROXEN
     Dosage: 500.0 MG, 2 EVERY 1 DAYS
     Route: 048
  4. PREDNISONE. [Concomitant]
     Active Substance: PREDNISONE
     Dosage: 1 EVERY 1 DAYS
     Route: 048
  5. VALACYCLOVIR [Concomitant]
     Active Substance: VALACYCLOVIR HYDROCHLORIDE
     Dosage: 500.0 MG, 2 EVERY 1 DAYS
     Route: 048
  6. WINPRED [Concomitant]
     Active Substance: PREDNISONE
  7. RITUXIMAB (UNKNOWN) [Suspect]
     Active Substance: RITUXIMAB
     Dosage: 1000.0 MG
     Route: 042
  8. HYDROMORPHONE [Concomitant]
     Active Substance: HYDROMORPHONE
     Dosage: 1.0 MG,1 EVERY 4 HOURS
     Route: 048
  9. METHYLPREDNISOLONE. [Concomitant]
     Active Substance: METHYLPREDNISOLONE
     Indication: PREMEDICATION
     Dosage: 100.0 MG
     Route: 042
  10. CALCIUM D [CALCIUM;COLECALCIFEROL] [Concomitant]
     Active Substance: CALCIUM\CHOLECALCIFEROL
     Dosage: 500.0 MG, 2 EVERY 1 DAYS
     Route: 048
  11. DIPHENHYDRAMINE HYDROCHLORIDE. [Concomitant]
     Active Substance: DIPHENHYDRAMINE HYDROCHLORIDE
     Indication: PREMEDICATION
     Dosage: 50.0 MG
     Route: 048
  12. LANSOPRAZOLE. [Concomitant]
     Active Substance: LANSOPRAZOLE
     Dosage: 30.0 MG, 3 EVERY 1 DAYS
     Route: 048
  13. METHOTREXATE SODIUM. [Concomitant]
     Active Substance: METHOTREXATE SODIUM
     Dosage: 20.0 MG, 1 EVERY 1 WEEKS
     Route: 058
  14. VYVANSE [Concomitant]
     Active Substance: LISDEXAMFETAMINE DIMESYLATE
     Dosage: 50.0 MG, 1 EVERY 1 DAYS
     Route: 048
  15. ALENDRONATE SODIUM. [Concomitant]
     Active Substance: ALENDRONATE SODIUM
     Dosage: 70.0 MG, 1 EVERY 1 WEEKS
     Route: 048
  16. HYDROXYCHLOROQUINE/00072603/ [Concomitant]
     Active Substance: HYDROXYCHLOROQUINE SULFATE
     Dosage: 400.0 MG, 1 EVERY 1 DAYS
     Route: 048
  17. TYLENOL [Concomitant]
     Active Substance: ACETAMINOPHEN
     Indication: PREMEDICATION
     Dosage: 650.0 MG
     Route: 048
  18. AMLODIPINE [Suspect]
     Active Substance: AMLODIPINE BESYLATE
     Indication: HYPERTENSION
     Route: 065
  19. ACETAMINOPHEN. [Concomitant]
     Active Substance: ACETAMINOPHEN
     Indication: PREMEDICATION
     Dosage: 650.0 MG
     Route: 048
  20. SYNTHROID [Concomitant]
     Active Substance: LEVOTHYROXINE SODIUM
     Dosage: 0.088 MG, 1 EVERY 1 DAYS
     Route: 048
  21. TRAZODONE [Concomitant]
     Active Substance: TRAZODONE HYDROCHLORIDE
     Dosage: 50.0 MG,1 EVERY 1 DAYS
     Route: 048
  22. RITUXIMAB (UNKNOWN) [Suspect]
     Active Substance: RITUXIMAB
     Indication: RHEUMATOID ARTHRITIS
     Dosage: UNK
     Route: 042
  23. DESOGESTREL AND ETHINYL ESTRADIOL [Concomitant]
     Active Substance: DESOGESTREL\ETHINYL ESTRADIOL
     Dosage: 0.15 MG, 1 EVERY 1 DAYS
     Route: 048
  24. LEUCOVORIN [FOLINIC ACID] [Concomitant]
     Active Substance: LEUCOVORIN
     Dosage: 5.0 MG, 3 EVERY 1 DAYS
     Route: 048
  25. VOLTAREN [DICLOFENAC] [Concomitant]
     Active Substance: DICLOFENAC SODIUM
     Dosage: 2.32 PERCENT
     Route: 061

REACTIONS (9)
  - Limb injury [Not Recovered/Not Resolved]
  - Hypotension [Not Recovered/Not Resolved]
  - Pallor [Not Recovered/Not Resolved]
  - Blood pressure decreased [Not Recovered/Not Resolved]
  - Fatigue [Not Recovered/Not Resolved]
  - Blood pressure diastolic decreased [Not Recovered/Not Resolved]
  - Blood pressure diastolic abnormal [Not Recovered/Not Resolved]
  - Pain in extremity [Not Recovered/Not Resolved]
  - Dizziness [Not Recovered/Not Resolved]
